FAERS Safety Report 6975878-8 (Version None)
Quarter: 2010Q3

REPORT INFORMATION
  Report Type: 
  Country: None (occurrence: None)
  Receive Date: 20100910
  Receipt Date: 20090410
  Transmission Date: 20110219
  Serious: No
  Sender: FDA-Public Use
  Company Number: US-WYE-H08923109

PATIENT
  Sex: Male
  Weight: 81.72 kg

DRUGS (4)
  1. PRISTIQ [Suspect]
     Indication: DEPRESSION
     Route: 048
     Dates: start: 20090301, end: 20090320
  2. PRISTIQ [Suspect]
     Route: 048
     Dates: start: 20090321, end: 20090328
  3. PRISTIQ [Suspect]
     Route: 048
     Dates: start: 20090402
  4. ASPIRIN [Concomitant]

REACTIONS (6)
  - DRUG HYPERSENSITIVITY [None]
  - GINGIVAL PAIN [None]
  - LYMPHADENOPATHY [None]
  - ORAL DISCOMFORT [None]
  - OROPHARYNGEAL PAIN [None]
  - TOOTHACHE [None]
